FAERS Safety Report 21878651 (Version 1)
Quarter: 2023Q1

REPORT INFORMATION
  Report Type: Spontaneous
  Country: GB (occurrence: GB)
  Receive Date: 20230118
  Receipt Date: 20230118
  Transmission Date: 20230418
  Serious: Yes (Other)
  Sender: FDA-Public Use
  Company Number: GB-MHRA-MED-202301161036394380-VGKFN

PATIENT
  Sex: Female

DRUGS (2)
  1. REMICADE [Suspect]
     Active Substance: INFLIXIMAB
     Indication: Colitis ulcerative
     Dosage: 350MG IV
     Route: 041
     Dates: start: 20230103
  2. MESALAMINE [Concomitant]
     Active Substance: MESALAMINE

REACTIONS (1)
  - Trismus [Unknown]

NARRATIVE: CASE EVENT DATE: 20230113
